FAERS Safety Report 7150712-4 (Version None)
Quarter: 2010Q4

REPORT INFORMATION
  Report Type: 
  Country: None (occurrence: None)
  Receive Date: 20101210
  Receipt Date: 20101207
  Transmission Date: 20110411
  Serious: Yes (Life-Threatening, Hospitalization, Disabling, Other)
  Sender: FDA-Public Use
  Company Number: DE-ELI_LILLY_AND_COMPANY-DE201011004358

PATIENT
  Sex: Male
  Weight: 106 kg

DRUGS (2)
  1. BYETTA [Suspect]
     Indication: DIABETES MELLITUS
     Dosage: 5 UG, 2/D
     Route: 058
     Dates: start: 20100301, end: 20100409
  2. METFORMIN [Concomitant]
     Indication: DIABETES MELLITUS
     Dosage: 3000 MG, UNK
     Route: 048
     Dates: start: 20100301, end: 20100409

REACTIONS (3)
  - DIARRHOEA [None]
  - RENAL FAILURE [None]
  - VOMITING [None]
